FAERS Safety Report 24437003 (Version 1)
Quarter: 2024Q4

REPORT INFORMATION
  Report Type: Spontaneous
  Country: NL (occurrence: NL)
  Receive Date: 20241015
  Receipt Date: 20241015
  Transmission Date: 20250115
  Serious: Yes (Other)
  Sender: ASCEND
  Company Number: NL-Ascend Therapeutics US, LLC-2163026

PATIENT
  Sex: Male

DRUGS (2)
  1. ANDROGEL [Suspect]
     Active Substance: TESTOSTERONE
  2. ANDROGEL [Suspect]
     Active Substance: TESTOSTERONE

REACTIONS (2)
  - Squamous cell carcinoma of skin [Unknown]
  - Application site irritation [Unknown]
